FAERS Safety Report 17055394 (Version 1)
Quarter: 2019Q4

REPORT INFORMATION
  Report Type: Spontaneous
  Country: US (occurrence: US)
  Receive Date: 20191120
  Receipt Date: 20191120
  Transmission Date: 20200122
  Serious: Yes (Other)
  Sender: FDA-Public Use
  Company Number: US-TEVA-2019-US-1137969

PATIENT
  Sex: Female

DRUGS (1)
  1. KELNOR 1/35 [Suspect]
     Active Substance: ETHINYL ESTRADIOL\ETHYNODIOL DIACETATE
     Indication: CONTRACEPTION
     Dosage: FORM STRENGTH: ETHYNODIOL DIACETATE 1 MG AND ETHINYL ESTRADIOL 35 MCG TABLET
     Route: 065

REACTIONS (1)
  - Coeliac disease [Unknown]
